FAERS Safety Report 13977524 (Version 1)
Quarter: 2017Q3

REPORT INFORMATION
  Report Type: Spontaneous
  Country: GB (occurrence: GB)
  Receive Date: 20170915
  Receipt Date: 20170915
  Transmission Date: 20171128
  Serious: Yes (Other)
  Sender: FDA-Public Use
  Company Number: GB-ASTRAZENECA-2017SE92547

PATIENT
  Sex: Male

DRUGS (14)
  1. HUMULIN INSULIN [Concomitant]
     Active Substance: INSULIN HUMAN
     Dosage: 38 UNITS
     Dates: start: 201407
  2. VITAMIN E [Concomitant]
     Active Substance: .ALPHA.-TOCOPHEROL
  3. FORXIGA [Suspect]
     Active Substance: DAPAGLIFLOZIN
     Indication: TYPE 2 DIABETES MELLITUS
     Dosage: 5.0MG UNKNOWN
     Route: 048
  4. VITAMIN D3 [Concomitant]
     Active Substance: CHOLECALCIFEROL
     Dosage: 4 DROPS
  5. MILK THISTLE [Concomitant]
     Active Substance: MILK THISTLE
     Dosage: 1 X 100MG
  6. ATORVASTATIN [Concomitant]
     Active Substance: ATORVASTATIN
     Dosage: 20.0MG UNKNOWN
  7. ZINC. [Concomitant]
     Active Substance: ZINC
  8. RAMIPRIL. [Concomitant]
     Active Substance: RAMIPRIL
     Dosage: 10.0MG UNKNOWN
  9. FORXIGA [Suspect]
     Active Substance: DAPAGLIFLOZIN
     Indication: TYPE 2 DIABETES MELLITUS
     Dosage: UNKNOWN
     Route: 048
  10. VITAMIN C [Concomitant]
     Active Substance: ASCORBIC ACID
     Dosage: 1 X 100MG
  11. METFORMIN [Concomitant]
     Active Substance: METFORMIN HYDROCHLORIDE
  12. SERTRALINE [Concomitant]
     Active Substance: SERTRALINE HYDROCHLORIDE
     Dosage: 50.0MG UNKNOWN
  13. OMEGA 3 [Concomitant]
     Active Substance: OMEGA-3 FATTY ACIDS
  14. DOXAZOSIN [Concomitant]
     Active Substance: DOXAZOSIN\DOXAZOSIN MESYLATE
     Dosage: 4.0MG UNKNOWN

REACTIONS (9)
  - Candida infection [Unknown]
  - Adverse drug reaction [Unknown]
  - Pain [Unknown]
  - Dysuria [Unknown]
  - Glycosylated haemoglobin increased [Unknown]
  - Urine output increased [Unknown]
  - Dehydration [Unknown]
  - Drug ineffective [Unknown]
  - Hepatic steatosis [Unknown]
